FAERS Safety Report 4883329-2 (Version None)
Quarter: 2006Q1

REPORT INFORMATION
  Report Type: 
  Country: None (occurrence: None)
  Receive Date: 20060118
  Receipt Date: 20060113
  Transmission Date: 20060701
  Serious: Yes (Life-Threatening)
  Sender: FDA-Public Use
  Company Number: D01200502091

PATIENT
  Age: 73 Year
  Sex: Male
  Weight: 114 kg

DRUGS (4)
  1. FONDAPARINUX SODIUM [Suspect]
     Dosage: 2.5MG PER DAY
     Route: 058
     Dates: end: 20050316
  2. ASPIRIN [Concomitant]
  3. CLOPIDOGREL [Concomitant]
  4. HEPARIN [Concomitant]

REACTIONS (1)
  - CATHETER RELATED COMPLICATION [None]
